FAERS Safety Report 5912869-X (Version None)
Quarter: 2008Q4

REPORT INFORMATION
  Report Type: 
  Country: None (occurrence: None)
  Receive Date: 20081008
  Receipt Date: 20081003
  Transmission Date: 20090506
  Serious: Yes (Other)
  Sender: FDA-Public Use
  Company Number: GB-MERCK-0810GBR00031

PATIENT
  Age: 40 Year
  Sex: Male
  Weight: 88 kg

DRUGS (4)
  1. ZOCOR [Suspect]
     Indication: LIPIDS INCREASED
     Route: 048
     Dates: start: 20080101, end: 20080926
  2. AMLODIPINE BESYLATE [Concomitant]
     Route: 065
  3. INSULIN DETEMIR [Concomitant]
     Route: 065
  4. INSULIN ASPART [Concomitant]
     Route: 065

REACTIONS (1)
  - MYOSITIS [None]
